FAERS Safety Report 16956723 (Version 1)
Quarter: 2019Q4

REPORT INFORMATION
  Report Type: Spontaneous
  Country: US (occurrence: US)
  Receive Date: 20191024
  Receipt Date: 20191024
  Transmission Date: 20200122
  Serious: No
  Sender: FDA-Public Use
  Company Number: US-GLENMARK PHARMACEUTICALS-2019GMK042760

PATIENT

DRUGS (3)
  1. OXCARBAZEPINE. [Suspect]
     Active Substance: OXCARBAZEPINE
     Dosage: 900 MG, QD (3 TABLETS PER DAY)
     Route: 048
     Dates: start: 2019
  2. OXCARBAZEPINE. [Suspect]
     Active Substance: OXCARBAZEPINE
     Indication: TRIGEMINAL NEURALGIA
     Dosage: 600 MG, QD (2 TABLETS A DAY)
     Route: 048
     Dates: start: 201606
  3. OXCARBAZEPINE. [Suspect]
     Active Substance: OXCARBAZEPINE
     Dosage: 600 MG, QD (2 TABLETS PER DAY)
     Route: 048
     Dates: start: 201906

REACTIONS (4)
  - Product quality issue [Unknown]
  - Disease recurrence [Not Recovered/Not Resolved]
  - Drug ineffective for unapproved indication [Unknown]
  - Product colour issue [Unknown]

NARRATIVE: CASE EVENT DATE: 201906
